FAERS Safety Report 24464254 (Version 1)
Quarter: 2024Q4

REPORT INFORMATION
  Report Type: Report from Study
  Country: US (occurrence: US)
  Receive Date: 20241018
  Receipt Date: 20241018
  Transmission Date: 20250114
  Serious: No
  Sender: ROCHE
  Company Number: US-ROCHE-3334463

PATIENT
  Age: 77 Year
  Sex: Female
  Weight: 54.3 kg

DRUGS (10)
  1. XOLAIR [Suspect]
     Active Substance: OMALIZUMAB
     Indication: Asthma
     Route: 058
  2. XOLAIR [Suspect]
     Active Substance: OMALIZUMAB
     Indication: Asthma
     Route: 058
  3. BROVANA [Concomitant]
     Active Substance: ARFORMOTEROL TARTRATE
  4. BUDESONIDE [Concomitant]
     Active Substance: BUDESONIDE
  5. IPRATROPIUM [Concomitant]
     Active Substance: IPRATROPIUM
  6. LEVOTHYROXINE [Concomitant]
     Active Substance: LEVOTHYROXINE
  7. PRAVASTATIN [Concomitant]
     Active Substance: PRAVASTATIN
  8. RECLAST [Concomitant]
     Active Substance: ZOLEDRONIC ACID
  9. SODIUM CHLORIDE [Concomitant]
     Active Substance: SODIUM CHLORIDE
  10. VENTOLIN [Concomitant]
     Active Substance: ALBUTEROL SULFATE

REACTIONS (2)
  - Off label use [Unknown]
  - No adverse event [Unknown]
